FAERS Safety Report 8540878-3 (Version None)
Quarter: 2012Q3

REPORT INFORMATION
  Report Type: 
  Country: None (occurrence: None)
  Receive Date: 20120726
  Receipt Date: 20120720
  Transmission Date: 20120928
  Serious: Yes (Death, Hospitalization, Other)
  Sender: FDA-Public Use
  Company Number: US-PFIZER INC-2012101669

PATIENT
  Sex: Male
  Weight: 65.306 kg

DRUGS (1)
  1. REVATIO [Suspect]
     Dosage: UNK
     Route: 048

REACTIONS (3)
  - PNEUMONIA [None]
  - WEIGHT DECREASED [None]
  - DEATH [None]
